FAERS Safety Report 21051987 (Version 1)
Quarter: 2022Q3

REPORT INFORMATION
  Report Type: Spontaneous
  Country: US (occurrence: US)
  Receive Date: 20220707
  Receipt Date: 20220707
  Transmission Date: 20221027
  Serious: No
  Sender: FDA-Public Use
  Company Number: US-GLAXOSMITHKLINE-USCH2022023161

PATIENT
  Sex: Male

DRUGS (1)
  1. VOLTAREN ARTHRITIS PAIN [Suspect]
     Active Substance: DICLOFENAC SODIUM
     Indication: Arthritis
     Dosage: 24D (EVERY HOUR)
     Dates: start: 20210801

REACTIONS (3)
  - Therapeutic product effect variable [Unknown]
  - Product use issue [Unknown]
  - Inappropriate schedule of product administration [Unknown]
